FAERS Safety Report 11294602 (Version 1)
Quarter: 2015Q2

REPORT INFORMATION
  Report Type: Spontaneous
  Country: US (occurrence: None)
  Receive Date: 20150623
  Receipt Date: 20150623
  Transmission Date: 20150821
  Serious: Yes (Other)
  Sender: FDA-Public Use
  Company Number: RB-69059-2014

PATIENT
  Age: 58 Year
  Sex: Female

DRUGS (2)
  1. PREDNISONE. [Concomitant]
     Active Substance: PREDNISONE
  2. MUCINEX DM [Suspect]
     Active Substance: DEXTROMETHORPHAN HYDROBROMIDE\GUAIFENESIN
     Indication: PRODUCT USED FOR UNKNOWN INDICATION
     Dates: start: 20140919

REACTIONS (7)
  - Dyspnoea [None]
  - Insomnia [None]
  - Dysphagia [None]
  - Dysgeusia [None]
  - Expired product administered [None]
  - Pharyngeal oedema [None]
  - Vomiting [None]

NARRATIVE: CASE EVENT DATE: 20140919
